FAERS Safety Report 14278767 (Version 3)
Quarter: 2020Q1

REPORT INFORMATION
  Report Type: Report from Study
  Country: DE (occurrence: DE)
  Receive Date: 20171212
  Receipt Date: 20200131
  Transmission Date: 20200409
  Serious: Yes (Hospitalization, Other)
  Sender: FDA-Public Use
  Company Number: DE-MYLANLABS-2017M1076856

PATIENT
  Age: 61 Year
  Sex: Male
  Weight: 74 kg

DRUGS (24)
  1. STELARA [Suspect]
     Active Substance: USTEKINUMAB
     Dosage: 45 MILLIGRAM
     Route: 058
     Dates: start: 20150925
  2. STELARA [Suspect]
     Active Substance: USTEKINUMAB
     Dosage: 90 MILLIGRAM
     Route: 058
     Dates: start: 20160627
  3. STELARA [Suspect]
     Active Substance: USTEKINUMAB
     Dosage: 45 MG, UNK
     Route: 058
  4. STELARA [Suspect]
     Active Substance: USTEKINUMAB
     Dosage: 90 MG, UNK
     Route: 058
  5. STELARA [Suspect]
     Active Substance: USTEKINUMAB
     Dosage: 45 MILLIGRAM
     Route: 058
     Dates: start: 20171109
  6. STELARA [Suspect]
     Active Substance: USTEKINUMAB
     Dosage: 45 MG, UNK
     Route: 058
  7. STELARA [Suspect]
     Active Substance: USTEKINUMAB
     Dosage: 90 MG, UNK
     Route: 058
  8. STELARA [Suspect]
     Active Substance: USTEKINUMAB
     Dosage: 45 MILLIGRAM
     Route: 058
     Dates: start: 20170802
  9. STELARA [Suspect]
     Active Substance: USTEKINUMAB
     Dosage: 45 MILLIGRAM
     Route: 058
     Dates: start: 20170623
  10. STELARA [Suspect]
     Active Substance: USTEKINUMAB
     Dosage: 45 MG, UNK
     Route: 058
  11. STELARA [Suspect]
     Active Substance: USTEKINUMAB
     Dosage: 90 MILLIGRAM
     Route: 058
     Dates: start: 20160323
  12. STELARA [Suspect]
     Active Substance: USTEKINUMAB
     Dosage: 45 MILLIGRAM
     Route: 058
     Dates: start: 20180509
  13. STELARA [Suspect]
     Active Substance: USTEKINUMAB
     Dosage: 45 MILLIGRAM
     Route: 058
     Dates: start: 20151023
  14. METHOTREXATE. [Suspect]
     Active Substance: METHOTREXATE
     Indication: PRODUCT USED FOR UNKNOWN INDICATION
     Dosage: DOSAGE FORM: UNSPECIFIED
     Route: 065
  15. STELARA [Suspect]
     Active Substance: USTEKINUMAB
     Indication: PSORIATIC ARTHROPATHY
     Dosage: 90 MG, UNK
     Route: 058
  16. STELARA [Suspect]
     Active Substance: USTEKINUMAB
     Dosage: 90 MG, UNK
     Route: 058
  17. STELARA [Suspect]
     Active Substance: USTEKINUMAB
     Dosage: 45 MG, UNK
     Route: 058
  18. STELARA [Suspect]
     Active Substance: USTEKINUMAB
     Dosage: 90 MILLIGRAM
     Route: 058
     Dates: start: 20160926
  19. STELARA [Suspect]
     Active Substance: USTEKINUMAB
     Dosage: 45 MILLIGRAM
     Route: 058
     Dates: start: 20160115
  20. STELARA [Suspect]
     Active Substance: USTEKINUMAB
     Dosage: 45 MILLIGRAM
     Route: 058
     Dates: start: 20181025
  21. STELARA [Suspect]
     Active Substance: USTEKINUMAB
     Dosage: 45 MG, UNK
     Route: 058
  22. STELARA [Suspect]
     Active Substance: USTEKINUMAB
     Dosage: 45 MG, UNK
     Route: 058
  23. STELARA [Suspect]
     Active Substance: USTEKINUMAB
     Dosage: 90 MILLIGRAM
     Route: 058
     Dates: start: 20170116
  24. STELARA [Suspect]
     Active Substance: USTEKINUMAB
     Dosage: 45 MILLIGRAM
     Route: 058
     Dates: start: 20180717

REACTIONS (5)
  - Abscess limb [Recovered/Resolved]
  - Intervertebral disc protrusion [Recovered/Resolved with Sequelae]
  - Radiculopathy [Recovered/Resolved]
  - Off label use [Unknown]
  - Incorrect dose administered [Unknown]

NARRATIVE: CASE EVENT DATE: 20160323
